FAERS Safety Report 6028244-6 (Version None)
Quarter: 2008Q4

REPORT INFORMATION
  Report Type: 
  Country: None (occurrence: None)
  Receive Date: 20081231
  Receipt Date: 20081222
  Transmission Date: 20090506
  Serious: Yes (Death, Hospitalization, Other)
  Sender: FDA-Public Use
  Company Number: 107#08#2008-06056

PATIENT
  Age: 67 Year
  Sex: Male

DRUGS (5)
  1. AMIODARONE HCL [Suspect]
     Indication: DRUG USE FOR UNKNOWN INDICATION
     Dosage: 200 MG
  2. DIGOXIN [Concomitant]
  3. FUROSEMIDE [Concomitant]
  4. CADESARTAN CILEXETIL (CADESARTAN CILEXETIL) [Concomitant]
  5. CARVEDILOL [Concomitant]

REACTIONS (13)
  - BLOOD CREATININE INCREASED [None]
  - CARDIAC FAILURE CONGESTIVE [None]
  - GENERAL PHYSICAL HEALTH DETERIORATION [None]
  - GLOMERULONEPHRITIS [None]
  - HAEMATURIA [None]
  - HAEMOSIDEROSIS [None]
  - INTERSTITIAL LUNG DISEASE [None]
  - LIVER DISORDER [None]
  - LUNG NEOPLASM MALIGNANT [None]
  - PLEURAL EFFUSION [None]
  - PROTEINURIA [None]
  - PULMONARY MASS [None]
  - VENTRICULAR TACHYCARDIA [None]
